FAERS Safety Report 8929155 (Version 1)
Quarter: 2012Q4

REPORT INFORMATION
  Report Type: 
  Country: GB (occurrence: GB)
  Receive Date: 20121127
  Receipt Date: 20121127
  Transmission Date: 20130627
  Serious: Yes (Other)
  Sender: FDA-Public Use
  Company Number: PHHY2012GB106858

PATIENT
  Sex: Female
  Weight: 88.2 kg

DRUGS (9)
  1. METFORMIN [Suspect]
  2. BYETTA [Suspect]
     Indication: TYPE 2 DIABETES MELLITUS
     Dosage: 5 ug, twice a day in the initial month
     Route: 058
     Dates: end: 20121108
  3. FUROSEMIDE [Concomitant]
  4. INSULIN GLARGINE [Concomitant]
  5. SPIRONOLACTONE [Concomitant]
  6. ASPIRIN [Concomitant]
  7. BISOPROLOL [Concomitant]
  8. CANDESARTAN [Concomitant]
  9. OMEPRAZOLE [Concomitant]

REACTIONS (5)
  - Renal failure acute [Unknown]
  - Weight decreased [Unknown]
  - Hyperglycaemia [Unknown]
  - Nausea [Recovered/Resolved]
  - Therapeutic response unexpected [Unknown]
